FAERS Safety Report 24658713 (Version 2)
Quarter: 2024Q4

REPORT INFORMATION
  Report Type: Spontaneous
  Country: FR (occurrence: FR)
  Receive Date: 20241125
  Receipt Date: 20241213
  Transmission Date: 20250115
  Serious: Yes (Death, Hospitalization, Other)
  Sender: BRISTOL-MYERS SQUIBB COMPANY
  Company Number: None

PATIENT
  Age: 65 Year
  Sex: Male
  Weight: 67 kg

DRUGS (5)
  1. KRAZATI [Suspect]
     Active Substance: ADAGRASIB
     Indication: Non-small cell lung cancer recurrent
     Dosage: ADAGRASIB 200MG, 3 TABLETS AT 8 A.M. AND 3 TABLETS AT 8 P.M.
     Route: 048
     Dates: start: 20240831, end: 20240904
  2. KRAZATI [Suspect]
     Active Substance: ADAGRASIB
     Dosage: ADAGRASIB 200MG, 3 TABLETS AT 8 A.M. AND 3 TABLETS AT 8 P.M.
     Route: 048
     Dates: start: 20240923, end: 20241006
  3. LEVETIRACETAM [Concomitant]
     Active Substance: LEVETIRACETAM
     Indication: Seizure prophylaxis
     Dosage: 500MG MORNING AND EVENING
     Route: 048
  4. PREDNISOLONE [Concomitant]
     Active Substance: PREDNISOLONE
     Indication: Non-small cell lung cancer recurrent
     Dosage: MORNING
     Route: 048
  5. ACETAMINOPHEN [Concomitant]
     Active Substance: ACETAMINOPHEN
     Indication: Product used for unknown indication

REACTIONS (9)
  - Neurological decompensation [Fatal]
  - Clostridium difficile colitis [Unknown]
  - Delirium [Unknown]
  - Pneumonia [Unknown]
  - Respiratory failure [Fatal]
  - Hypernatraemia [Unknown]
  - Pericardial effusion [Unknown]
  - Acute kidney injury [Fatal]
  - Pulmonary sepsis [Unknown]

NARRATIVE: CASE EVENT DATE: 20240904
